FAERS Safety Report 5833580-X (Version None)
Quarter: 2008Q3

REPORT INFORMATION
  Report Type: 
  Country: None (occurrence: None)
  Receive Date: 20080804
  Receipt Date: 20080804
  Transmission Date: 20090109
  Serious: No
  Sender: FDA-Public Use
  Company Number: None

PATIENT
  Age: 61 Year
  Sex: Female
  Weight: 67.1324 kg

DRUGS (2)
  1. ROZEREM [Suspect]
     Indication: ANXIETY
     Dosage: 1 8 MG TABLET 1 TIME PER DAY
     Dates: start: 20080606, end: 20080802
  2. ROZEREM [Suspect]
     Indication: INSOMNIA
     Dosage: 1 8 MG TABLET 1 TIME PER DAY
     Dates: start: 20080606, end: 20080802

REACTIONS (4)
  - ABNORMAL DREAMS [None]
  - DRUG INEFFECTIVE [None]
  - DYSURIA [None]
  - NIGHTMARE [None]
